FAERS Safety Report 12495373 (Version 3)
Quarter: 2016Q3

REPORT INFORMATION
  Report Type: Spontaneous
  Country: JP (occurrence: JP)
  Receive Date: 20160624
  Receipt Date: 20160805
  Transmission Date: 20161109
  Serious: Yes (Life-Threatening, Hospitalization, Other)
  Sender: FDA-Public Use
  Company Number: JP-009507513-1606JPN011423

PATIENT
  Age: 52 Year
  Sex: Male

DRUGS (7)
  1. METGLUCO [Concomitant]
     Active Substance: METFORMIN HYDROCHLORIDE
     Dosage: 250 MG, QD
     Dates: start: 20150808
  2. GLACTIV [Suspect]
     Active Substance: SITAGLIPTIN
     Indication: TYPE 2 DIABETES MELLITUS
     Dosage: 25 MG, ONCE A DAY
     Route: 048
     Dates: start: 20110215, end: 20150911
  3. TANATRIL [Concomitant]
     Active Substance: IMIDAPRIL
     Dosage: 5 MG, QD
     Dates: start: 20050823, end: 20141226
  4. TANATRIL [Concomitant]
     Active Substance: IMIDAPRIL
     Dosage: 2.5 MG, QD
     Dates: start: 20141227, end: 20160304
  5. LANDEL [Concomitant]
     Active Substance: UNSPECIFIED INGREDIENT
     Dosage: 20 MG, QD
     Dates: start: 20111122, end: 20141226
  6. LANDEL [Concomitant]
     Active Substance: UNSPECIFIED INGREDIENT
     Dosage: 40 MG, QD
     Dates: start: 20141227
  7. LIOVEL [Suspect]
     Active Substance: ALOGLIPTIN BENZOATE\PIOGLITAZONE HYDROCHLORIDE
     Indication: TYPE 2 DIABETES MELLITUS
     Dosage: 1 DF, QD
     Route: 048
     Dates: start: 20150912

REACTIONS (2)
  - Pancreatic carcinoma [Not Recovered/Not Resolved]
  - Blood potassium increased [Unknown]

NARRATIVE: CASE EVENT DATE: 20160129
